FAERS Safety Report 9685721 (Version 1)
Quarter: 2013Q4

REPORT INFORMATION
  Report Type: Spontaneous
  Country: US (occurrence: US)
  Receive Date: 20131113
  Receipt Date: 20131113
  Transmission Date: 20140711
  Serious: Yes (Other)
  Sender: FDA-Public Use
  Company Number: US-ELI_LILLY_AND_COMPANY-US201311000893

PATIENT
  Sex: Male

DRUGS (1)
  1. STRATTERA [Suspect]
     Indication: PRODUCT USED FOR UNKNOWN INDICATION
     Dosage: UNK, UNKNOWN
     Route: 065
     Dates: start: 201309

REACTIONS (8)
  - Suicidal ideation [Unknown]
  - Dysphagia [Unknown]
  - Aphagia [Unknown]
  - Hunger [Unknown]
  - Abdominal distension [Unknown]
  - Mood swings [Unknown]
  - Wrong technique in drug usage process [Unknown]
  - Drug ineffective [Unknown]
